FAERS Safety Report 10344648 (Version 1)
Quarter: 2014Q3

REPORT INFORMATION
  Report Type: Spontaneous
  Country: ES (occurrence: ES)
  Receive Date: 20140728
  Receipt Date: 20140728
  Transmission Date: 20150326
  Serious: Yes (Hospitalization, Other)
  Sender: FDA-Public Use
  Company Number: PHHY2014ES091034

PATIENT
  Age: 47 Year
  Sex: Male

DRUGS (4)
  1. CLOZAPINE. [Suspect]
     Active Substance: CLOZAPINE
     Indication: SCHIZOPHRENIA, PARANOID TYPE
     Dosage: 600 MG, PER DAY
  2. BIPERIDEN [Concomitant]
     Active Substance: BIPERIDEN
     Dosage: 4 MG, PER DAY
  3. RISPERIDONE. [Suspect]
     Active Substance: RISPERIDONE
     Indication: SCHIZOPHRENIA, PARANOID TYPE
     Dosage: 8 MG, PER DAY
  4. LORAZEPAM. [Concomitant]
     Active Substance: LORAZEPAM
     Dosage: 15 MG, PER DAY

REACTIONS (13)
  - Abdominal discomfort [Recovering/Resolving]
  - Fibrosis [Recovering/Resolving]
  - Suicide attempt [Unknown]
  - Vomiting [Recovering/Resolving]
  - Diarrhoea [Recovering/Resolving]
  - Rectal haemorrhage [Recovering/Resolving]
  - Colitis ischaemic [Recovering/Resolving]
  - Swelling [Recovering/Resolving]
  - Aggression [Unknown]
  - Pyrexia [Recovering/Resolving]
  - Anal ulcer [Recovering/Resolving]
  - Erythema [Recovering/Resolving]
  - Cognitive disorder [Unknown]
